FAERS Safety Report 9084974 (Version 1)
Quarter: 2013Q1

REPORT INFORMATION
  Report Type: Report from Study
  Country: US (occurrence: US)
  Receive Date: 20130131
  Receipt Date: 20130131
  Transmission Date: 20140127
  Serious: No
  Sender: FDA-Public Use
  Company Number: US-ABBOTT-12P-163-0995288-00

PATIENT
  Age: 73 Year
  Sex: Female

DRUGS (4)
  1. HUMIRA [Suspect]
     Indication: CROHN^S DISEASE
     Dosage: LOADING DOSE
     Dates: start: 20121012
  2. LUMIGAN [Concomitant]
     Indication: GLAUCOMA
     Dosage: EYE DROPS, ONE EACH EYE AT BEDTIME
  3. DORZOLAMIDE/TIMOLOL [Concomitant]
     Indication: GLAUCOMA
     Dosage: 1 DROP LEFT EYE IN AM AND PM
  4. PREDNISONE [Concomitant]
     Indication: PRODUCT USED FOR UNKNOWN INDICATION
     Dosage: 5 MG DAILY FOR ONE WEEK THAN TAPER DOSE

REACTIONS (2)
  - Vomiting [Recovering/Resolving]
  - Diarrhoea [Recovering/Resolving]
